FAERS Safety Report 8381999-8 (Version None)
Quarter: 2012Q2

REPORT INFORMATION
  Report Type: 
  Country: None (occurrence: None)
  Receive Date: 20120522
  Receipt Date: 20120522
  Transmission Date: 20120825
  Serious: Yes (Other)
  Sender: FDA-Public Use
  Company Number: None

PATIENT
  Age: 51 Year
  Sex: Female
  Weight: 68.0396 kg

DRUGS (1)
  1. CYMBALTA [Suspect]
     Indication: DEPRESSION
     Dosage: 1 TABLET DAILY PO
     Route: 048
     Dates: start: 20100101, end: 20120501

REACTIONS (11)
  - FEELING ABNORMAL [None]
  - PAIN [None]
  - INFLUENZA LIKE ILLNESS [None]
  - DIARRHOEA [None]
  - EMOTIONAL DISORDER [None]
  - VISION BLURRED [None]
  - CRYING [None]
  - HEADACHE [None]
  - DIZZINESS [None]
  - MEMORY IMPAIRMENT [None]
  - CONSTIPATION [None]
